FAERS Safety Report 17044494 (Version 1)
Quarter: 2019Q4

REPORT INFORMATION
  Report Type: Spontaneous
  Country: US (occurrence: US)
  Receive Date: 20191117
  Receipt Date: 20191117
  Transmission Date: 20200122
  Serious: Yes (Other)
  Sender: FDA-Public Use
  Company Number: None

PATIENT
  Age: 49 Year
  Sex: Male

DRUGS (2)
  1. ONE-A-DAY VITAMINS [Concomitant]
     Dates: start: 20191031
  2. VEMLIDY [Suspect]
     Active Substance: TENOFOVIR ALAFENAMIDE FUMARATE
     Indication: HEPATITIS B
     Route: 048
     Dates: start: 20191031

REACTIONS (10)
  - Dizziness [None]
  - Insomnia [None]
  - Agitation [None]
  - Malaise [None]
  - Fatigue [None]
  - Pruritus [None]
  - Dyspnoea [None]
  - Palpitations [None]
  - Headache [None]
  - Urine odour abnormal [None]

NARRATIVE: CASE EVENT DATE: 20191117
